FAERS Safety Report 7370599-4 (Version None)
Quarter: 2011Q1

REPORT INFORMATION
  Report Type: 
  Country: None (occurrence: None)
  Receive Date: 20110323
  Receipt Date: 20110309
  Transmission Date: 20110831
  Serious: Yes (Hospitalization)
  Sender: FDA-Public Use
  Company Number: US-ACTELION-A-US2011-46482

PATIENT

DRUGS (1)
  1. BOSENTAN [Suspect]
     Indication: PULMONARY ARTERIAL HYPERTENSION
     Dosage: UNK
     Route: 048
     Dates: start: 20060525

REACTIONS (4)
  - ARTHRITIS [None]
  - KNEE OPERATION [None]
  - JOINT EFFUSION [None]
  - LOSS OF CONSCIOUSNESS [None]
